FAERS Safety Report 10575038 (Version 1)
Quarter: 2014Q4

REPORT INFORMATION
  Report Type: Spontaneous
  Country: CN (occurrence: CN)
  Receive Date: 20141111
  Receipt Date: 20141111
  Transmission Date: 20150529
  Serious: Yes (Life-Threatening)
  Sender: FDA-Public Use
  Company Number: CN-ROCHE-1486630

PATIENT
  Age: 60 Year
  Sex: Male

DRUGS (1)
  1. MABTHERA [Suspect]
     Active Substance: RITUXIMAB
     Indication: B-CELL LYMPHOMA
     Route: 041
     Dates: start: 20140509, end: 20140509

REACTIONS (6)
  - Pyrexia [Recovering/Resolving]
  - Tachycardia [Recovering/Resolving]
  - Dizziness [Recovering/Resolving]
  - Chills [Recovering/Resolving]
  - Loss of consciousness [Recovering/Resolving]
  - Blood pressure increased [Recovering/Resolving]

NARRATIVE: CASE EVENT DATE: 20140509
